FAERS Safety Report 16482970 (Version 1)
Quarter: 2019Q2

REPORT INFORMATION
  Report Type: Spontaneous
  Country: DE (occurrence: DE)
  Receive Date: 20190627
  Receipt Date: 20190627
  Transmission Date: 20190711
  Serious: Yes (Other)
  Sender: FDA-Public Use
  Company Number: DE-ACTELION-A-CH2019-192138

PATIENT
  Age: 50 Year
  Sex: Male

DRUGS (2)
  1. OPSUMIT [Suspect]
     Active Substance: MACITENTAN
     Indication: PULMONARY HYPERTENSION
     Route: 048
  2. RIOCIGUAT. [Concomitant]
     Active Substance: RIOCIGUAT

REACTIONS (1)
  - Angioplasty [Unknown]

NARRATIVE: CASE EVENT DATE: 201411
